FAERS Safety Report 12714185 (Version 4)
Quarter: 2018Q2

REPORT INFORMATION
  Report Type: Spontaneous
  Country: US (occurrence: US)
  Receive Date: 20160905
  Receipt Date: 20180629
  Transmission Date: 20180711
  Serious: Yes (Other)
  Sender: FDA-Public Use
  Company Number: US-PFIZER INC-2016411887

PATIENT
  Age: 53 Year
  Sex: Female

DRUGS (3)
  1. LYRICA [Suspect]
     Active Substance: PREGABALIN
     Indication: FIBROMYALGIA
  2. LYRICA [Suspect]
     Active Substance: PREGABALIN
     Indication: POST-TRAUMATIC STRESS DISORDER
  3. LYRICA [Suspect]
     Active Substance: PREGABALIN
     Indication: DEPRESSION
     Dosage: 20 MG, ONCE PER DAY
     Route: 048
     Dates: start: 200606

REACTIONS (4)
  - Nightmare [Unknown]
  - Drug ineffective [Recovered/Resolved]
  - Abnormal dreams [Unknown]
  - Suicidal ideation [Unknown]

NARRATIVE: CASE EVENT DATE: 200606
